FAERS Safety Report 10391023 (Version 2)
Quarter: 2016Q3

REPORT INFORMATION
  Report Type: Spontaneous
  Country: IT (occurrence: IT)
  Receive Date: 20140818
  Receipt Date: 20160811
  Transmission Date: 20161109
  Serious: Yes (Other)
  Sender: FDA-Public Use
  Company Number: IT-TEVA-502836ISR

PATIENT
  Age: 40 Year
  Sex: Female

DRUGS (5)
  1. VENLAFAXINE [Suspect]
     Active Substance: VENLAFAXINE HYDROCHLORIDE
     Indication: BIPOLAR II DISORDER
     Dosage: 150 MILLIGRAM DAILY;
     Route: 065
  2. LEVOTHYROXINE SODIUM. [Concomitant]
     Active Substance: LEVOTHYROXINE SODIUM
     Indication: HYPOTHYROIDISM
     Dosage: 75 MILLIGRAM DAILY;
     Route: 065
  3. LITHIUM. [Interacting]
     Active Substance: LITHIUM
     Indication: BIPOLAR II DISORDER
     Dosage: 600 MILLIGRAM DAILY;
     Route: 065
  4. BUPROPION. [Interacting]
     Active Substance: BUPROPION
     Indication: BIPOLAR II DISORDER
     Dosage: 150 MILLIGRAM DAILY;
     Route: 065
  5. ARIPIPRAZOLE. [Interacting]
     Active Substance: ARIPIPRAZOLE
     Indication: BIPOLAR II DISORDER
     Dosage: 7.5 MILLIGRAM DAILY;
     Route: 065

REACTIONS (3)
  - Hypomania [Recovered/Resolved]
  - Drug interaction [Recovered/Resolved]
  - Off label use [Unknown]
